FAERS Safety Report 7077224-0 (Version None)
Quarter: 2010Q4

REPORT INFORMATION
  Report Type: 
  Country: None (occurrence: None)
  Receive Date: 20101101
  Receipt Date: 20101025
  Transmission Date: 20110411
  Serious: Yes (Other)
  Sender: FDA-Public Use
  Company Number: US-ELI_LILLY_AND_COMPANY-US201010005699

PATIENT
  Sex: Female

DRUGS (3)
  1. FLUOXETINE HYDROCHLORIDE [Suspect]
     Indication: PREMENSTRUAL SYNDROME
  2. OTHER PHARMA COMPANY INV DRUG [Suspect]
     Indication: MIGRAINE
     Dosage: UNK, UNKNOWN
     Route: 065
  3. OTHER PHARMA COMPANY INV DRUG [Suspect]
     Indication: PREMENSTRUAL SYNDROME
     Dosage: UNK, UNKNOWN
     Route: 065

REACTIONS (1)
  - CHEST PAIN [None]
